FAERS Safety Report 5907855-X (Version None)
Quarter: 2008Q4

REPORT INFORMATION
  Report Type: 
  Country: None (occurrence: None)
  Receive Date: 20081003
  Receipt Date: 20080923
  Transmission Date: 20090506
  Serious: Yes (Disabling, Other)
  Sender: FDA-Public Use
  Company Number: FR-PFIZER INC-2008028889

PATIENT
  Sex: Male
  Weight: 72 kg

DRUGS (4)
  1. LYRICA [Suspect]
     Indication: MUSCLE DISORDER
     Route: 048
     Dates: start: 20080118, end: 20080327
  2. LYRICA [Suspect]
     Indication: PARAESTHESIA
  3. LYRICA [Suspect]
     Indication: PAIN
  4. COAPROVEL [Suspect]
     Indication: HYPERTENSION
     Route: 048
     Dates: start: 20080118

REACTIONS (4)
  - MUSCLE RUPTURE [None]
  - MYALGIA [None]
  - PAIN IN EXTREMITY [None]
  - TENDON RUPTURE [None]
